FAERS Safety Report 10013097 (Version 1)
Quarter: 2014Q1

REPORT INFORMATION
  Report Type: Spontaneous
  Country: GB (occurrence: GB)
  Receive Date: 20140314
  Receipt Date: 20140314
  Transmission Date: 20141002
  Serious: Yes (Disabling)
  Sender: FDA-Public Use
  Company Number: GB-TEVA-467464ISR

PATIENT
  Age: 67 Year
  Sex: Male
  Weight: 77 kg

DRUGS (13)
  1. ALENDRONIC ACID [Suspect]
     Route: 048
     Dates: start: 20131104
  2. AMITRIPTYLINE HYDROCHLORIDE [Concomitant]
     Dates: start: 20140130
  3. AMOXICILLIN [Concomitant]
     Dates: start: 20131126, end: 20140206
  4. CALCIUM CARBONATE [Concomitant]
     Dates: start: 20131104
  5. CO-CODAMOL [Concomitant]
     Dates: start: 20131104
  6. DIAZEPAM [Concomitant]
     Dates: start: 20131205, end: 20131210
  7. GAVISCON ADVANCE [Concomitant]
     Dates: start: 20131104
  8. HYDROXYZINE [Concomitant]
     Dates: start: 20131104
  9. PANTOPRAZOLE [Concomitant]
     Dates: start: 20131104
  10. RANITIDINE [Concomitant]
     Dates: start: 20131104
  11. SALMETEROL [Concomitant]
     Dates: start: 20131104
  12. TIOTROPIUM [Concomitant]
     Dates: start: 20131104
  13. ZOPICLONE [Concomitant]
     Dates: start: 20140114, end: 20140211

REACTIONS (1)
  - Swelling [Recovering/Resolving]
